FAERS Safety Report 5385129-6 (Version None)
Quarter: 2007Q3

REPORT INFORMATION
  Report Type: 
  Country: None (occurrence: None)
  Receive Date: 20070712
  Receipt Date: 20070709
  Transmission Date: 20080115
  Serious: Yes (Hospitalization)
  Sender: FDA-Public Use
  Company Number: US-BAYER-200711825BCC

PATIENT
  Age: 61 Year
  Sex: Male
  Weight: 100 kg

DRUGS (7)
  1. ALKA SELTZER [Suspect]
     Indication: DYSPEPSIA
     Route: 048
     Dates: start: 20060801
  2. COFFEE [Suspect]
     Indication: DRUG USE FOR UNKNOWN INDICATION
  3. CIGARETTES [Suspect]
     Indication: DRUG USE FOR UNKNOWN INDICATION
  4. ASPIRIN [Suspect]
     Indication: DRUG USE FOR UNKNOWN INDICATION
     Route: 048
  5. CADUET [Concomitant]
  6. LISINOPRIL [Concomitant]
     Route: 048
  7. ADVIL LIQUI-GELS [Concomitant]

REACTIONS (5)
  - ACCIDENT AT WORK [None]
  - CARDIAC DISORDER [None]
  - DYSPEPSIA [None]
  - HEART RATE DECREASED [None]
  - ILL-DEFINED DISORDER [None]
